FAERS Safety Report 9887535 (Version 1)
Quarter: 2013Q4

REPORT INFORMATION
  Report Type: Spontaneous
  Country: US (occurrence: None)
  Receive Date: 20131223
  Receipt Date: 20131223
  Transmission Date: 20140711
  Serious: Yes (Other)
  Sender: FDA-Public Use
  Company Number: 220336LEO

PATIENT
  Age: 60 Year
  Sex: Female

DRUGS (2)
  1. PICATO [Suspect]
     Indication: ACTINIC KERATOSIS
     Dosage: GEL, DAILY, DERMAL
     Dates: start: 20130123, end: 20130125
  2. ESTROGEN (ESTROGEN NOS) [Concomitant]

REACTIONS (4)
  - Application site exfoliation [None]
  - Application site dryness [None]
  - Application site swelling [None]
  - Drug administered at inappropriate site [None]
